FAERS Safety Report 12357468 (Version 1)
Quarter: 2016Q2

REPORT INFORMATION
  Report Type: Spontaneous
  Country: US (occurrence: US)
  Receive Date: 20160511
  Receipt Date: 20160511
  Transmission Date: 20160815
  Serious: Yes (Hospitalization, Disabling)
  Sender: FDA-Public Use
  Company Number: US-ENDO PHARMACEUTICALS INC.-2016-000567

PATIENT
  Age: 56 Year
  Sex: Male
  Weight: 112.14 kg

DRUGS (21)
  1. ACETAMINOPHEN\HYDROCODONE BITARTRATE [Concomitant]
     Active Substance: ACETAMINOPHEN\HYDROCODONE BITARTRATE
     Indication: PAIN
     Route: 065
     Dates: start: 20040406, end: 20140530
  2. LISINOPRIL. [Concomitant]
     Active Substance: LISINOPRIL
     Indication: HYPERTENSION
     Route: 065
     Dates: start: 20070707
  3. BUPROPION. [Concomitant]
     Active Substance: BUPROPION
     Indication: DEPRESSION
     Route: 065
     Dates: start: 20070104, end: 20140527
  4. AMPHETAMINE [Concomitant]
     Active Substance: AMPHETAMINE
     Indication: DECREASED APPETITE
     Route: 065
     Dates: start: 20090211, end: 20130115
  5. ADVAIR HFA [Concomitant]
     Active Substance: FLUTICASONE PROPIONATE\SALMETEROL XINAFOATE
     Indication: ASTHMA
     Route: 055
     Dates: start: 20060623, end: 20140507
  6. CARISOPRODOL. [Concomitant]
     Active Substance: CARISOPRODOL
     Indication: PAIN
     Route: 065
     Dates: start: 20040115, end: 20140520
  7. ALBUTEROL. [Concomitant]
     Active Substance: ALBUTEROL
     Indication: CHRONIC OBSTRUCTIVE PULMONARY DISEASE
     Route: 055
     Dates: start: 20050720, end: 20140520
  8. TESTIM [Suspect]
     Active Substance: TESTOSTERONE
     Indication: ANDROGEN REPLACEMENT THERAPY
     Route: 062
     Dates: start: 20060115, end: 20060215
  9. TESTIM [Suspect]
     Active Substance: TESTOSTERONE
     Route: 062
     Dates: start: 20080621, end: 20140527
  10. ANDRODERM [Suspect]
     Active Substance: TESTOSTERONE
     Indication: ANDROGEN REPLACEMENT THERAPY
     Route: 065
     Dates: start: 20071106, end: 20071206
  11. OXYCODONE [Concomitant]
     Active Substance: OXYCODONE
     Indication: PAIN
     Route: 065
     Dates: start: 20040802, end: 20140507
  12. TRIAMTERENE HCTZ [Concomitant]
     Active Substance: HYDROCHLOROTHIAZIDE\TRIAMTERENE
     Indication: HYPERTENSION
     Route: 065
     Dates: start: 20040331
  13. METFORMIN [Concomitant]
     Active Substance: METFORMIN HYDROCHLORIDE
     Indication: TYPE 2 DIABETES MELLITUS
     Route: 065
     Dates: start: 20070501, end: 20140417
  14. NEXIUM [Concomitant]
     Active Substance: ESOMEPRAZOLE MAGNESIUM
     Indication: PRODUCT USED FOR UNKNOWN INDICATION
     Route: 065
     Dates: start: 20050608, end: 20140527
  15. LEVOTHYROXINE. [Concomitant]
     Active Substance: LEVOTHYROXINE
     Indication: HYPOTHYROIDISM
     Route: 065
     Dates: start: 20051019, end: 20140514
  16. AZITHROMYCIN ANHYDROUS. [Concomitant]
     Active Substance: AZITHROMYCIN ANHYDROUS
     Indication: PRODUCT USED FOR UNKNOWN INDICATION
     Route: 065
     Dates: start: 20060623, end: 20140520
  17. TESTIM [Suspect]
     Active Substance: TESTOSTERONE
     Route: 062
     Dates: start: 20070421, end: 20070621
  18. ANDROGEL [Suspect]
     Active Substance: TESTOSTERONE
     Indication: ANDROGEN REPLACEMENT THERAPY
     Route: 065
     Dates: start: 20060417, end: 20060706
  19. OXYCONTIN [Concomitant]
     Active Substance: OXYCODONE HYDROCHLORIDE
     Indication: PAIN
     Route: 065
     Dates: start: 20040903, end: 20140530
  20. TEMAZEPAM. [Concomitant]
     Active Substance: TEMAZEPAM
     Indication: DEPRESSION
     Route: 065
     Dates: start: 20040312, end: 20130924
  21. LIOTHYRONINE [Concomitant]
     Active Substance: LIOTHYRONINE
     Indication: PRODUCT USED FOR UNKNOWN INDICATION
     Route: 065
     Dates: start: 20100129, end: 20140520

REACTIONS (11)
  - Fear of death [Unknown]
  - Pulmonary infarction [Not Recovered/Not Resolved]
  - Pneumonia aspiration [Unknown]
  - Pneumonia [Unknown]
  - Anxiety [Unknown]
  - Asthenia [Unknown]
  - Thrombosis [Not Recovered/Not Resolved]
  - Acute respiratory failure [Unknown]
  - Pulmonary embolism [Not Recovered/Not Resolved]
  - Cardiac failure congestive [Unknown]
  - Peripheral swelling [Unknown]

NARRATIVE: CASE EVENT DATE: 20110820
